FAERS Safety Report 8957782 (Version 1)
Quarter: 2012Q4

REPORT INFORMATION
  Report Type: 
  Country: BR (occurrence: BR)
  Receive Date: 20121210
  Receipt Date: 20121210
  Transmission Date: 20130627
  Serious: Yes (Hospitalization, Other)
  Sender: FDA-Public Use
  Company Number: BR-PFIZER INC-2012306458

PATIENT
  Age: 68 Year
  Sex: Male

DRUGS (2)
  1. FRONTAL [Suspect]
     Dosage: 0.5 mg (one tablet), 1x/day
     Route: 048
     Dates: start: 20120506
  2. LIPITOR [Concomitant]
     Indication: CHOLESTEROL
     Dosage: 1 tablet 1x/day
     Dates: start: 20121022

REACTIONS (5)
  - Infarction [Unknown]
  - Cerebrovascular accident [Unknown]
  - Nosocomial infection [Unknown]
  - Asthenia [Unknown]
  - Depression [Unknown]
